APPROVED DRUG PRODUCT: TROPICAMIDE
Active Ingredient: TROPICAMIDE
Strength: 1%
Dosage Form/Route: SOLUTION/DROPS;OPHTHALMIC
Application: A207524 | Product #001 | TE Code: AT
Applicant: SOMERSET THERAPEUTICS LLC
Approved: Dec 12, 2019 | RLD: No | RS: No | Type: RX